FAERS Safety Report 22587548 (Version 1)
Quarter: 2023Q2

REPORT INFORMATION
  Report Type: Report from Study
  Country: CO (occurrence: CO)
  Receive Date: 20230612
  Receipt Date: 20230612
  Transmission Date: 20230722
  Serious: Yes (Disabling, Other)
  Sender: FDA-Public Use
  Company Number: CO-ABBVIE-5283308

PATIENT
  Sex: Female
  Weight: 60 kg

DRUGS (2)
  1. BOTOX [Suspect]
     Active Substance: ONABOTULINUMTOXINA
     Indication: Migraine
     Dosage: TIME INTERVAL: AS NECESSARY: FORM STRENGTH: 200 DOSAGE FORMS
     Route: 030
     Dates: start: 20190719, end: 20190719
  2. LIDOCAINE [Concomitant]
     Active Substance: LIDOCAINE
     Indication: Fibromyalgia
     Dosage: NOT REFERRED.

REACTIONS (4)
  - Vocal cord cyst [Recovering/Resolving]
  - Dysphonia [Recovering/Resolving]
  - Aphonia [Recovering/Resolving]
  - Post procedural complication [Recovering/Resolving]

NARRATIVE: CASE EVENT DATE: 20210101
